FAERS Safety Report 10780393 (Version 1)
Quarter: 2015Q1

REPORT INFORMATION
  Report Type: Spontaneous
  Country: US (occurrence: US)
  Receive Date: 20150210
  Receipt Date: 20150210
  Transmission Date: 20150721
  Serious: No
  Sender: FDA-Public Use
  Company Number: US-GLAXOSMITHKLINE-A1084016A

PATIENT

DRUGS (5)
  1. METOPROLOL SUCCINATE. [Concomitant]
     Active Substance: METOPROLOL SUCCINATE
  2. TRIAMCINOLONE CREAM [Concomitant]
  3. TYKERB [Suspect]
     Active Substance: LAPATINIB DITOSYLATE
     Indication: BREAST CANCER
     Dosage: 250 MG TABLETS AT 1000 MG DAILY
     Route: 048
     Dates: start: 20140201
  4. ENOXAPARIN [Concomitant]
     Active Substance: ENOXAPARIN
  5. LETROZOLE. [Concomitant]
     Active Substance: LETROZOLE

REACTIONS (1)
  - Rash [Unknown]

NARRATIVE: CASE EVENT DATE: 20140728
